FAERS Safety Report 6781083-0 (Version None)
Quarter: 2010Q2

REPORT INFORMATION
  Report Type: 
  Country: None (occurrence: None)
  Receive Date: 20100617
  Receipt Date: 20100617
  Transmission Date: 20101027
  Serious: Yes (Hospitalization)
  Sender: FDA-Public Use
  Company Number: None

PATIENT
  Sex: Female
  Weight: 62.5 kg

DRUGS (3)
  1. AZACITIDINE [Suspect]
     Indication: ACUTE MYELOID LEUKAEMIA
     Dosage: AZACITIDINE 75 MG/M2 QD IV
     Route: 042
  2. REVLEMID [Concomitant]
     Dosage: REVLEMID 50 MG QD PO
     Route: 048
  3. PLEASE SEE 21 PAGE ATTACHMENT [Concomitant]

REACTIONS (4)
  - FEBRILE NEUTROPENIA [None]
  - HYPOXIA [None]
  - PNEUMONIA [None]
  - TRANSFUSION REACTION [None]
